FAERS Safety Report 5679002-3 (Version None)
Quarter: 2008Q1

REPORT INFORMATION
  Report Type: 
  Country: None (occurrence: None)
  Receive Date: 20080325
  Receipt Date: 20080318
  Transmission Date: 20080703
  Serious: Yes (Death, Life-Threatening, Hospitalization)
  Sender: FDA-Public Use
  Company Number: B0481565A

PATIENT
  Age: 18 Year
  Sex: Male

DRUGS (2)
  1. ALBENDAZOLE [Suspect]
     Indication: DRUG USE FOR UNKNOWN INDICATION
     Dosage: 400MG SINGLE DOSE
  2. IVERMECTIN [Suspect]
     Dosage: 200MCK SINGLE DOSE
     Route: 065

REACTIONS (18)
  - ANOREXIA [None]
  - BLISTER [None]
  - CIRCULATORY COLLAPSE [None]
  - DEATH [None]
  - GLOSSODYNIA [None]
  - HAEMATEMESIS [None]
  - HAEMOPTYSIS [None]
  - HAEMORRHAGE [None]
  - MALAISE [None]
  - OCULAR HYPERAEMIA [None]
  - ORAL PAIN [None]
  - RASH [None]
  - SEPSIS [None]
  - SKIN EXFOLIATION [None]
  - STAPHYLOCOCCAL SKIN INFECTION [None]
  - STEVENS-JOHNSON SYNDROME [None]
  - SUPERINFECTION [None]
  - TOXIC EPIDERMAL NECROLYSIS [None]
